FAERS Safety Report 5825004-3 (Version None)
Quarter: 2008Q3

REPORT INFORMATION
  Report Type: 
  Country: None (occurrence: None)
  Receive Date: 20080728
  Receipt Date: 20080721
  Transmission Date: 20090109
  Serious: Yes (Other)
  Sender: FDA-Public Use
  Company Number: GB-PFIZER INC-2008061214

PATIENT
  Age: 55 Year
  Sex: Female

DRUGS (2)
  1. DOXAZOSIN MESYLATE [Suspect]
     Route: 048
  2. ATENOLOL [Concomitant]

REACTIONS (5)
  - MUSCLE SPASMS [None]
  - NEURALGIA [None]
  - PAIN IN EXTREMITY [None]
  - PARAESTHESIA [None]
  - SOMNOLENCE [None]
